FAERS Safety Report 13573019 (Version 1)
Quarter: 2017Q2

REPORT INFORMATION
  Report Type: Spontaneous
  Country: US (occurrence: US)
  Receive Date: 20170523
  Receipt Date: 20170523
  Transmission Date: 20170830
  Serious: No
  Sender: FDA-Public Use
  Company Number: US-NOVOPROD-506848

PATIENT
  Age: 4 Year
  Sex: Male

DRUGS (1)
  1. NORDITROPIN [Suspect]
     Active Substance: SOMATROPIN
     Indication: DWARFISM
     Dosage: 0.5 MG, QD
     Route: 058
     Dates: start: 201510

REACTIONS (1)
  - Frequent bowel movements [Not Recovered/Not Resolved]
